FAERS Safety Report 9822826 (Version 2)
Quarter: 2014Q1

REPORT INFORMATION
  Report Type: Spontaneous
  Country: US (occurrence: US)
  Receive Date: 20140116
  Receipt Date: 20140121
  Transmission Date: 20141002
  Serious: Yes (Disabling)
  Sender: FDA-Public Use
  Company Number: US-PERRIGO-14US000106

PATIENT
  Age: 76 Year
  Sex: Female
  Weight: 104.3 kg

DRUGS (6)
  1. OXYMETAZOLINE HYDROCHLORIDE 0.05% 688 [Suspect]
     Indication: NASAL CONGESTION
     Dosage: TWO SPRAYS ONE NOSTRIL Q12HR PRN
     Route: 045
     Dates: start: 2012, end: 20131225
  2. ANALGESICS [Concomitant]
     Indication: PAIN
     Dosage: UNK, UNK
     Route: 065
     Dates: start: 20131231
  3. ANTIHYPERTENSIVES [Concomitant]
     Indication: HYPERTENSION
     Dosage: UNK, UNK
     Route: 065
  4. ANTITHROMBOTIC AGENTS [Concomitant]
     Indication: ANTICOAGULANT THERAPY
     Dosage: UNK, UNK
     Route: 065
  5. THYROID THERAPY [Concomitant]
     Indication: THYROID DISORDER
     Dosage: UNK, UNK
     Route: 065
     Dates: start: 1994
  6. KEFLEX                             /00145501/ [Concomitant]
     Indication: SURGERY
     Dosage: 1 DF, BID
     Route: 048
     Dates: start: 20131212, end: 20131222

REACTIONS (2)
  - Ageusia [Not Recovered/Not Resolved]
  - Wrong technique in drug usage process [Unknown]
